FAERS Safety Report 20033624 (Version 2)
Quarter: 2021Q4

REPORT INFORMATION
  Report Type: Spontaneous
  Country: US (occurrence: US)
  Receive Date: 20211104
  Receipt Date: 20211110
  Transmission Date: 20220303
  Serious: No
  Sender: FDA-Public Use
  Company Number: US-AMGEN-USASP2021168582

PATIENT
  Sex: Female

DRUGS (1)
  1. OTEZLA [Suspect]
     Active Substance: APREMILAST
     Indication: Product used for unknown indication
     Dosage: UNK
     Route: 065
     Dates: start: 20210922, end: 20210925

REACTIONS (10)
  - Skin exfoliation [Unknown]
  - Herpes zoster [Unknown]
  - Nervous system disorder [Unknown]
  - Erythema [Unknown]
  - Feeling hot [Unknown]
  - Feeling cold [Unknown]
  - Hyperhidrosis [Unknown]
  - Gait disturbance [Unknown]
  - Hypersensitivity [Unknown]
  - Psoriasis [Unknown]

NARRATIVE: CASE EVENT DATE: 20210101
